FAERS Safety Report 10708659 (Version 1)
Quarter: 2015Q1

REPORT INFORMATION
  Report Type: Spontaneous
  Country: JP (occurrence: JP)
  Receive Date: 20150113
  Receipt Date: 20150113
  Transmission Date: 20150721
  Serious: Yes (Life-Threatening, Hospitalization, Other)
  Sender: FDA-Public Use
  Company Number: JP-GLAXOSMITHKLINE-JP2014JPN016100

PATIENT
  Age: 73 Year
  Sex: Female

DRUGS (24)
  1. VOLIBRIS [Suspect]
     Active Substance: AMBRISENTAN
     Indication: PULMONARY HYPERTENSION
     Dosage: 2.5 MG, QD
     Route: 048
     Dates: start: 2014, end: 20141030
  2. FLUTIDE [Suspect]
     Active Substance: FLUTICASONE PROPIONATE
     Dosage: UNK
     Route: 048
  3. MAINTATE [Suspect]
     Active Substance: BISOPROLOL FUMARATE
     Route: 048
  4. BERAPROST SODIUM [Suspect]
     Active Substance: BERAPROST SODIUM
     Route: 065
  5. MEVALOTIN [Suspect]
     Active Substance: PRAVASTATIN SODIUM
     Route: 048
  6. VASOLAN [Suspect]
     Active Substance: VERAPAMIL HYDROCHLORIDE
     Indication: TACHYCARDIA
     Dosage: 40 MG, BID
     Route: 048
     Dates: end: 20141029
  7. THEOPHYLLINE [Suspect]
     Active Substance: THEOPHYLLINE ANHYDROUS
     Indication: ASTHMA
     Dosage: 100 MG, QD
     Route: 048
     Dates: end: 20141029
  8. DIART [Suspect]
     Active Substance: AZOSEMIDE
     Route: 048
  9. MUCODYNE [Suspect]
     Active Substance: CARBOCYSTEINE
     Route: 065
  10. LOXONIN [Suspect]
     Active Substance: LOXOPROFEN SODIUM
     Route: 065
  11. ALLEGRA [Suspect]
     Active Substance: FEXOFENADINE HYDROCHLORIDE
     Dosage: 60 MG, BID
     Route: 048
     Dates: end: 20141029
  12. SERETIDE [Suspect]
     Active Substance: FLUTICASONE FUROATE\SALMETEROL XINAFOATE
     Dosage: UNK
     Route: 048
  13. BISOLVON [Suspect]
     Active Substance: BROMHEXINE HYDROCHLORIDE
     Dosage: 4 MG, TID
     Route: 048
     Dates: end: 20141029
  14. ETIZOLAM [Suspect]
     Active Substance: ETIZOLAM
     Route: 048
  15. METGLUCO [Suspect]
     Active Substance: METFORMIN HYDROCHLORIDE
     Route: 048
  16. SINGULAIR [Suspect]
     Active Substance: MONTELUKAST SODIUM
     Indication: ASTHMA
     Dosage: 10 MG, QD
     Route: 048
     Dates: end: 20141029
  17. DIFENIDOL HYDROCHLORIDE [Suspect]
     Active Substance: DIPHENIDOL HYDROCHLORIDE
     Route: 048
  18. URSO [Suspect]
     Active Substance: URSODIOL
     Dosage: 50 MG, TID
     Route: 048
     Dates: end: 20141029
  19. OMEPRAZOLE. [Suspect]
     Active Substance: OMEPRAZOLE
     Route: 065
  20. MUCOSTA [Suspect]
     Active Substance: REBAMIPIDE
     Route: 065
  21. MICARDIS [Suspect]
     Active Substance: TELMISARTAN
     Indication: HYPERTENSION
     Dosage: 20 MG, QD
     Route: 048
     Dates: end: 20141029
  22. HUSCODE [Suspect]
     Active Substance: CHLORPHENIRAMINE MALEAT\DIHYDROCODEINE PHOSPHATE\METHYLEPHEDRINE HYDROCHLORIDE, DL-
     Dosage: 2 DF, TID
     Route: 048
     Dates: end: 20141029
  23. HALFDIGOXIN [Suspect]
     Active Substance: DIGOXIN
     Indication: TACHYCARDIA
     Dosage: 0.625 MG, QD
     Route: 048
     Dates: end: 20141029
  24. MACACY [Suspect]
     Active Substance: CLOFENAMIDE
     Dosage: UNK
     Route: 048

REACTIONS (5)
  - Pneumonia bacterial [Unknown]
  - Nasopharyngitis [Unknown]
  - Respiratory failure [Unknown]
  - Interstitial lung disease [Recovering/Resolving]
  - Pulmonary hypertension [Unknown]

NARRATIVE: CASE EVENT DATE: 201410
